FAERS Safety Report 10926955 (Version 1)
Quarter: 2015Q1

REPORT INFORMATION
  Report Type: Spontaneous
  Country: FR (occurrence: None)
  Receive Date: 20150316
  Receipt Date: 20150316
  Transmission Date: 20150721
  Serious: Yes (Hospitalization)
  Sender: FDA-Public Use
  Company Number: 8015259

PATIENT
  Age: 46 Year
  Sex: Female

DRUGS (9)
  1. LAMOTRIGINE (LAMOTRIGINE) (LAMOTRIGINE) [Suspect]
     Active Substance: LAMOTRIGINE
     Indication: PRODUCT USED FOR UNKNOWN INDICATION
     Route: 048
     Dates: start: 20150212, end: 20150217
  2. INEXIUM /01479302/ [Suspect]
     Active Substance: ESOMEPRAZOLE MAGNESIUM
     Indication: PRODUCT USED FOR UNKNOWN INDICATION
     Route: 048
     Dates: start: 20150212, end: 20150212
  3. LEVOTHYROX (LEVOTHYROXINE SODIUM) (100 MICROGRAM, TABLET) (LEVOTHYROXINE SODIUM) [Suspect]
     Active Substance: LEVOTHYROXINE
     Indication: PRODUCT USED FOR UNKNOWN INDICATION
     Route: 048
     Dates: start: 20140212
  4. ATARAX [Suspect]
     Active Substance: HYDROXYZINE\HYDROXYZINE HYDROCHLORIDE
     Indication: PRODUCT USED FOR UNKNOWN INDICATION
     Dosage: 50-50-100 (50 MG,3 IN 1 D)
     Route: 048
     Dates: start: 20150212, end: 20150212
  5. TERCIAN /00759301/ [Suspect]
     Active Substance: CYAMEMAZINE
     Indication: PRODUCT USED FOR UNKNOWN INDICATION
     Route: 048
     Dates: start: 20150212, end: 20150215
  6. ULTRAVIST [Suspect]
     Active Substance: IOPROMIDE
     Indication: PRODUCT USED FOR UNKNOWN INDICATION
     Route: 042
     Dates: start: 20150205, end: 20150205
  7. TRANXENE (CLORAZEPATE DIPOTASSIUM) (CAPSULES) (CLORAZEPATE DIPOTASSIUM) [Suspect]
     Active Substance: CLORAZEPATE DIPOTASSIUM
     Indication: PRODUCT USED FOR UNKNOWN INDICATION
     Route: 048
     Dates: start: 20150212, end: 20150217
  8. NOZINAN /00038601/ (LEVOMEPROMAZINE) (4 PERCENT, ORAL SOLUTION) (LEVOMEPROMAZINE) [Suspect]
     Active Substance: LEVOMEPROMAZINE
     Indication: PRODUCT USED FOR UNKNOWN INDICATION
     Route: 048
     Dates: start: 20150212, end: 20150212
  9. BEVITINE [Suspect]
     Active Substance: THIAMINE
     Indication: PRODUCT USED FOR UNKNOWN INDICATION
     Route: 048
     Dates: start: 20150212

REACTIONS (7)
  - Rash maculo-papular [None]
  - Abnormal behaviour [None]
  - Meningioma [None]
  - Liver disorder [None]
  - Eczema [None]
  - Renal atrophy [None]
  - Agitation [None]

NARRATIVE: CASE EVENT DATE: 20150215
